FAERS Safety Report 5415574-1 (Version None)
Quarter: 2007Q3

REPORT INFORMATION
  Report Type: 
  Country: None (occurrence: None)
  Receive Date: 20070815
  Receipt Date: 20070808
  Transmission Date: 20080115
  Serious: Yes (Other)
  Sender: FDA-Public Use
  Company Number: PHHO2007US02185

PATIENT
  Age: 25 Year
  Sex: Female
  Weight: 69.5 kg

DRUGS (5)
  1. GLEEVEC [Suspect]
     Indication: CHRONIC MYELOID LEUKAEMIA
     Dosage: 400 MG, QD
     Route: 048
     Dates: start: 20060831, end: 20070127
  2. GLEEVEC [Suspect]
     Dosage: 800MG
     Route: 048
     Dates: start: 20060406, end: 20060504
  3. GLEEVEC [Suspect]
     Dosage: NO TREATMENT
     Dates: start: 20060505, end: 20060517
  4. GLEEVEC [Suspect]
     Dosage: 800MG
     Route: 048
     Dates: start: 20060518, end: 20060521
  5. GLEEVEC [Suspect]
     Dosage: NO TREATMENT
     Dates: start: 20060522, end: 20060524

REACTIONS (2)
  - DRUG EXPOSURE DURING PREGNANCY [None]
  - PREMATURE LABOUR [None]
